FAERS Safety Report 8491441-4 (Version None)
Quarter: 2012Q2

REPORT INFORMATION
  Report Type: 
  Country: None (occurrence: None)
  Receive Date: 20120402
  Receipt Date: 20110613
  Transmission Date: 20120825
  Serious: Yes (Other)
  Sender: FDA-Public Use
  Company Number: PHHY2011US51776

PATIENT
  Sex: Female

DRUGS (13)
  1. CARVEDILOL [Suspect]
  2. ASPIRIN [Concomitant]
  3. SYMBICORT [Concomitant]
  4. POTASSIUM CHLORIDE [Concomitant]
  5. NORVASC [Suspect]
  6. VASOTEC [Suspect]
  7. COQ10 (UBIDECARENONE) [Concomitant]
  8. FISH OIL (FISH OIL) [Concomitant]
  9. OSTEO-BIFLEX (CHONDROITIN SULFATE, GLUCOSAMINE HYDROCHLORIDE) [Concomitant]
  10. SYNTHROID [Concomitant]
  11. EXFORGE [Suspect]
     Dosage: 1 DF, QD
  12. B COMPLEX (NICOTINAMIDE, PYRIDOXINE HYDROCHLORIDE, RIBOFLAVIN, THIAMIN [Concomitant]
  13. COMBIVENT [Concomitant]

REACTIONS (4)
  - MUSCULOSKELETAL DISCOMFORT [None]
  - WRONG TECHNIQUE IN DRUG USAGE PROCESS [None]
  - HYPOAESTHESIA [None]
  - MUSCLE SPASMS [None]
